FAERS Safety Report 7753569-3 (Version None)
Quarter: 2011Q3

REPORT INFORMATION
  Report Type: 
  Country: None (occurrence: None)
  Receive Date: 20110915
  Receipt Date: 20110908
  Transmission Date: 20111222
  Serious: Yes (Other)
  Sender: FDA-Public Use
  Company Number: US-GLAXOSMITHKLINE-A0839047A

PATIENT
  Age: 75 Year
  Sex: Male
  Weight: 125.5 kg

DRUGS (1)
  1. AVANDIA [Suspect]
     Indication: DIABETES MELLITUS
     Route: 048
     Dates: start: 20060213, end: 20070701

REACTIONS (7)
  - HYPERCHOLESTEROLAEMIA [None]
  - PAIN [None]
  - CARDIOMYOPATHY [None]
  - CORONARY ARTERY DISEASE [None]
  - HYPERTENSION [None]
  - AMNESIA [None]
  - MYOCARDIAL INFARCTION [None]
